FAERS Safety Report 12296349 (Version 2)
Quarter: 2016Q2

REPORT INFORMATION
  Report Type: Spontaneous
  Country: IN (occurrence: IN)
  Receive Date: 20160422
  Receipt Date: 20160422
  Transmission Date: 20160815
  Serious: Yes (Hospitalization, Other)
  Sender: FDA-Public Use
  Company Number: PHHY2016IN036624

PATIENT
  Sex: Female

DRUGS (4)
  1. CEFOPERAZONE+SULBACTAM [Suspect]
     Active Substance: CEFOPERAZONE SODIUM\SULBACTAM SODIUM
     Indication: SEPSIS
     Dosage: UNK UNK, QD
     Route: 042
     Dates: start: 20160228, end: 20160307
  2. PSORID [Suspect]
     Active Substance: CYCLOSPORINE
     Indication: PSORIASIS
     Dosage: UNK UNK, QD
     Route: 048
     Dates: start: 20150805, end: 20160304
  3. SCAPHO [Suspect]
     Active Substance: SECUKINUMAB
     Indication: PSORIASIS
     Dosage: UNK UNK, QW
     Route: 058
  4. METFORMIN [Suspect]
     Active Substance: METFORMIN HYDROCHLORIDE
     Indication: OBESITY
     Dosage: UNK UNK, QD
     Route: 048
     Dates: start: 20160229, end: 20160307

REACTIONS (10)
  - Burning sensation [Recovering/Resolving]
  - Inappropriate schedule of drug administration [Unknown]
  - Blood creatinine increased [Recovered/Resolved]
  - White blood cell count increased [Unknown]
  - Alanine aminotransferase increased [Unknown]
  - Liver function test abnormal [Recovering/Resolving]
  - Aspartate aminotransferase increased [Unknown]
  - Blood bilirubin increased [Unknown]
  - Mucosal inflammation [Recovered/Resolved]
  - Generalised erythema [Recovering/Resolving]

NARRATIVE: CASE EVENT DATE: 20160301
